FAERS Safety Report 7035256-2 (Version None)
Quarter: 2010Q4

REPORT INFORMATION
  Report Type: 
  Country: None (occurrence: None)
  Receive Date: 20101008
  Receipt Date: 20100929
  Transmission Date: 20110411
  Serious: Yes (Death)
  Sender: FDA-Public Use
  Company Number: A0810445A

PATIENT
  Age: 67 Year
  Sex: Female
  Weight: 69.5 kg

DRUGS (2)
  1. AVANDIA [Suspect]
     Dosage: 4MG PER DAY
     Route: 048
     Dates: start: 20050516, end: 20070304
  2. AVANDAMET [Suspect]
     Route: 048
     Dates: start: 20040810

REACTIONS (3)
  - ACUTE MYOCARDIAL INFARCTION [None]
  - CARDIAC ARREST [None]
  - HYPERTENSION [None]
